FAERS Safety Report 8384048-0 (Version None)
Quarter: 2012Q2

REPORT INFORMATION
  Report Type: 
  Country: None (occurrence: None)
  Receive Date: 20120524
  Receipt Date: 20120515
  Transmission Date: 20120825
  Serious: Yes (Other)
  Sender: FDA-Public Use
  Company Number: US-ROCHE-1069722

PATIENT
  Age: 54 Year
  Sex: Female

DRUGS (1)
  1. HERCEPTIN [Suspect]
     Indication: BREAST CANCER
     Route: 042
     Dates: start: 20120323

REACTIONS (6)
  - PAIN IN EXTREMITY [None]
  - CHEST PAIN [None]
  - RASH [None]
  - VOMITING [None]
  - PAIN [None]
  - HOT FLUSH [None]
